FAERS Safety Report 9923101 (Version 1)
Quarter: 2014Q1

REPORT INFORMATION
  Report Type: Spontaneous
  Country: US (occurrence: US)
  Receive Date: 20140225
  Receipt Date: 20140225
  Transmission Date: 20141002
  Serious: No
  Sender: FDA-Public Use
  Company Number: US-AMGEN-USASP2013069415

PATIENT
  Age: 63 Year
  Sex: Male

DRUGS (2)
  1. ENBREL [Suspect]
     Indication: RHEUMATOID ARTHRITIS
     Dosage: 50 MG, QWK
     Route: 065
     Dates: start: 20130531
  2. PLAQUENIL                          /00072602/ [Concomitant]
     Dosage: 25 MG, BID
     Dates: start: 201307

REACTIONS (1)
  - Diarrhoea [Not Recovered/Not Resolved]
